FAERS Safety Report 23472905 (Version 1)
Quarter: 2024Q1

REPORT INFORMATION
  Report Type: Report from Study
  Country: GB (occurrence: GB)
  Receive Date: 20240203
  Receipt Date: 20240203
  Transmission Date: 20240410
  Serious: Yes (Other)
  Sender: FDA-Public Use
  Company Number: GB-JNJFOC-20240161993

PATIENT
  Age: 6 Decade
  Sex: Male

DRUGS (1)
  1. TREMFYA [Suspect]
     Active Substance: GUSELKUMAB
     Indication: Psoriasis
     Route: 058
     Dates: start: 20230704

REACTIONS (5)
  - Lower respiratory tract infection [Unknown]
  - Increased appetite [Unknown]
  - Fatigue [Unknown]
  - Eye pruritus [Unknown]
  - Arthralgia [Unknown]
